FAERS Safety Report 6017870-6 (Version None)
Quarter: 2008Q4

REPORT INFORMATION
  Report Type: 
  Country: None (occurrence: None)
  Receive Date: 20081223
  Receipt Date: 20081216
  Transmission Date: 20090506
  Serious: Yes (Other)
  Sender: FDA-Public Use
  Company Number: JP-MERCK-0812USA04172

PATIENT
  Age: 85 Year
  Sex: Male

DRUGS (6)
  1. PEPCID [Suspect]
     Route: 048
     Dates: start: 20081016
  2. LANIRAPID [Concomitant]
     Route: 065
  3. WARFARIN POTASSIUM [Concomitant]
     Route: 065
  4. MUCODYNE [Concomitant]
     Route: 065
  5. BIO THREE [Concomitant]
     Route: 065
  6. SODIUM CHLORIDE [Concomitant]
     Route: 065

REACTIONS (1)
  - RENAL IMPAIRMENT [None]
